FAERS Safety Report 9935441 (Version 1)
Quarter: 2014Q1

REPORT INFORMATION
  Report Type: Spontaneous
  Country: US (occurrence: US)
  Receive Date: 20140228
  Receipt Date: 20140228
  Transmission Date: 20141002
  Serious: No
  Sender: FDA-Public Use
  Company Number: US-PFIZER INC-2014055311

PATIENT
  Age: 48 Year
  Sex: Male
  Weight: 99.77 kg

DRUGS (14)
  1. CHANTIX [Suspect]
     Indication: SMOKING CESSATION THERAPY
     Dosage: UNK
     Dates: start: 201402
  2. CHANTIX [Suspect]
     Dosage: 1 MG, 2X/DAY
  3. METOPROLOL [Concomitant]
     Indication: CORONARY ARTERY DISEASE
     Dosage: 25 MG, UNK
  4. LOSARTAN POTASSIUM [Concomitant]
     Indication: CORONARY ARTERY DISEASE
     Dosage: 25 MG, UNK
  5. EFFIENT [Concomitant]
     Indication: CORONARY ARTERY DISEASE
     Dosage: 160 MG, UNK
  6. CITALOPRAM [Concomitant]
     Indication: DEPRESSION
     Dosage: 40 MG, UNK
  7. DOXAZOSIN [Concomitant]
     Indication: BENIGN PROSTATIC HYPERPLASIA
     Dosage: 4 MG, UNK
  8. FINASTERIDE [Concomitant]
     Indication: BENIGN PROSTATIC HYPERPLASIA
     Dosage: 5 MG, UNK
  9. GEODON [Concomitant]
     Indication: AFFECTIVE DISORDER
     Dosage: 40 MG, UNK
  10. ATORVASTATIN [Concomitant]
     Indication: HYPERCHOLESTEROLAEMIA
     Dosage: 40 MG, UNK
  11. ATORVASTATIN [Concomitant]
     Indication: HYPERLIPIDAEMIA
  12. FENOFIBRATE [Concomitant]
     Indication: HYPERLIPIDAEMIA
     Dosage: 160 MG, UNK
  13. BUSPIRONE [Concomitant]
     Dosage: 10 MG, UNK
  14. AMBIEN [Concomitant]
     Indication: SLEEP DISORDER
     Dosage: 5 MG, UNK

REACTIONS (2)
  - Pruritus [Not Recovered/Not Resolved]
  - Local swelling [Recovering/Resolving]
